FAERS Safety Report 9398766 (Version 2)
Quarter: 2013Q3

REPORT INFORMATION
  Report Type: Spontaneous
  Country: US (occurrence: US)
  Receive Date: 20130712
  Receipt Date: 20130722
  Transmission Date: 20140515
  Serious: Yes (Hospitalization)
  Sender: FDA-Public Use
  Company Number: US-LUNDBECK-DKLU1092303

PATIENT
  Age: 1 Year
  Sex: Female

DRUGS (3)
  1. SABRIL (TABLET) [Suspect]
     Indication: INFANTILE SPASMS
     Route: 048
     Dates: start: 20121123
  2. SABRIL (TABLET) [Suspect]
     Route: 048
     Dates: start: 20121123
  3. LASIX [Concomitant]
     Indication: PRODUCT USED FOR UNKNOWN INDICATION

REACTIONS (4)
  - Angioplasty [Unknown]
  - Cardiac operation [Unknown]
  - Influenza [Unknown]
  - Drug dose omission [Unknown]
